FAERS Safety Report 7151127-5 (Version None)
Quarter: 2010Q4

REPORT INFORMATION
  Report Type: 
  Country: None (occurrence: None)
  Receive Date: 20101210
  Receipt Date: 20101202
  Transmission Date: 20110411
  Serious: Yes (Other)
  Sender: FDA-Public Use
  Company Number: GB-PFIZER INC-2010162483

PATIENT

DRUGS (1)
  1. SUTENT [Suspect]

REACTIONS (2)
  - ANAEMIA [None]
  - NEPHROPATHY [None]
